FAERS Safety Report 9186210 (Version 4)
Quarter: 2013Q2

REPORT INFORMATION
  Report Type: Spontaneous
  Country: US (occurrence: US)
  Receive Date: 20130325
  Receipt Date: 20130516
  Transmission Date: 20140414
  Serious: Yes (Death, Hospitalization, Other)
  Sender: FDA-Public Use
  Company Number: US-BAXTER-2013BAX010535

PATIENT
  Age: 67 Year
  Sex: Male

DRUGS (2)
  1. DIANEAL LOW CALCIUM [Suspect]
     Indication: PERITONEAL DIALYSIS
     Route: 033
     Dates: end: 20130327
  2. DIANEAL LOW CALCIUM [Suspect]
     Indication: PERITONEAL DIALYSIS
     Route: 033
     Dates: end: 20130327

REACTIONS (6)
  - Sepsis [Fatal]
  - Myocardial infarction [Recovered/Resolved]
  - Coronary artery occlusion [Unknown]
  - Peripheral circulatory failure [Not Recovered/Not Resolved]
  - Peripheral paralysis [Not Recovered/Not Resolved]
  - Gangrene [Not Recovered/Not Resolved]
